FAERS Safety Report 4370641-9 (Version None)
Quarter: 2004Q2

REPORT INFORMATION
  Report Type: 
  Country: None (occurrence: None)
  Receive Date: 20040525
  Receipt Date: 20040511
  Transmission Date: 20050107
  Serious: Yes (Hospitalization)
  Sender: FDA-Public Use
  Company Number: FR-JNJFOC-20040502785

PATIENT
  Age: 74 Year
  Sex: Female

DRUGS (10)
  1. TRAMADOL HCL [Suspect]
     Indication: DRUG USE FOR UNKNOWN INDICATION
     Dosage: 200 MG, 1 IN 1 DAY, UNKNOWN
     Dates: start: 20020923, end: 20021216
  2. PREVISCAN (FLUINDIONE) [Concomitant]
     Indication: DRUG USE FOR UNKNOWN INDICATION
     Dosage: 10 MG, 1 IN 1 DAY, ORAL; 5 MG, 1 IN 1 DAY, ORAL
     Route: 048
     Dates: start: 20021207, end: 20021216
  3. PREVISCAN (FLUINDIONE) [Concomitant]
     Indication: DRUG USE FOR UNKNOWN INDICATION
     Dosage: 10 MG, 1 IN 1 DAY, ORAL; 5 MG, 1 IN 1 DAY, ORAL
     Route: 048
     Dates: start: 20021216, end: 20021216
  4. RULID (ROXITHROMYCIN) [Suspect]
     Indication: DRUG USE FOR UNKNOWN INDICATION
     Dosage: 300 MG, 1 IN 1 DAY, ORAL
     Route: 048
     Dates: start: 20021213, end: 20021216
  5. ATORVASTATIN CALCIUM [Suspect]
     Indication: DRUG USE FOR UNKNOWN INDICATION
     Dosage: 2 DOSE (S), 1 IN 1 DAY
     Dates: start: 20020917
  6. VOLTAREN [Suspect]
     Indication: DRUG USE FOR UNKNOWN INDICATION
     Dosage: 100 MG, 1 IN 1 DAY, ORAL
     Route: 048
     Dates: start: 20021130, end: 20031216
  7. LEVOTHYROXINE SODIUM [Suspect]
     Indication: THYROID DISORDER
     Dosage: 100 UG, 1 IN 1 DAY, ORAL
     Route: 048
     Dates: start: 20020917
  8. CORDARONE [Suspect]
     Indication: DRUG USE FOR UNKNOWN INDICATION
     Dosage: 200 MG, 1 IN 1 DAY, ORAL
     Route: 048
     Dates: start: 20020917
  9. WARFARIN SODIUM [Suspect]
     Dosage: 2 MG, 1 IN 1 DAY, ORAL
     Route: 048
  10. FLUCONAZOLE [Concomitant]

REACTIONS (5)
  - ARTERIOVENOUS FISTULA SITE HAEMORRHAGE [None]
  - DRUG INTERACTION [None]
  - HAEMOGLOBIN DECREASED [None]
  - INTERNATIONAL NORMALISED RATIO INCREASED [None]
  - PROTHROMBIN TIME RATIO DECREASED [None]
